FAERS Safety Report 5942687-8 (Version None)
Quarter: 2008Q4

REPORT INFORMATION
  Report Type: 
  Country: None (occurrence: None)
  Receive Date: 20081106
  Receipt Date: 20081101
  Transmission Date: 20090506
  Serious: Yes (Hospitalization)
  Sender: FDA-Public Use
  Company Number: US-RB-005842-08

PATIENT
  Age: 17 Year
  Sex: Male

DRUGS (2)
  1. MUCINEX DM [Suspect]
     Route: 048
     Dates: start: 20081028
  2. INSULIN [Concomitant]

REACTIONS (3)
  - DYSPHORIA [None]
  - INSOMNIA [None]
  - LOSS OF CONSCIOUSNESS [None]
